FAERS Safety Report 6717455-X (Version None)
Quarter: 2010Q2

REPORT INFORMATION
  Report Type: 
  Country: None (occurrence: None)
  Receive Date: 20100503
  Receipt Date: 20100419
  Transmission Date: 20101027
  Serious: Yes (Other)
  Sender: FDA-Public Use
  Company Number: 7001861

PATIENT
  Sex: Female

DRUGS (4)
  1. REBIF [Suspect]
     Indication: MULTIPLE SCLEROSIS
     Dosage: 44 MCG, 3 IN1 SUBCUTANEOUS
     Route: 058
     Dates: start: 20091012, end: 20100328
  2. EXTRADIOL (ESTRADIOL) [Concomitant]
  3. LISINOPRIL [Concomitant]
  4. NEURONTIN [Concomitant]

REACTIONS (2)
  - GOITRE [None]
  - THYROID CANCER [None]
